FAERS Safety Report 5119633-2 (Version None)
Quarter: 2006Q4

REPORT INFORMATION
  Report Type: 
  Country: None (occurrence: None)
  Receive Date: 20061003
  Receipt Date: 20060928
  Transmission Date: 20070319
  Serious: Yes (Hospitalization, Other)
  Sender: FDA-Public Use
  Company Number: BE-GLAXOSMITHKLINE-B0440473A

PATIENT
  Age: 42 Year

DRUGS (1)
  1. AUGMENTIN [Suspect]
     Indication: LOWER RESPIRATORY TRACT INFECTION
     Dosage: 2G TWICE PER DAY
     Route: 048
     Dates: start: 20060901, end: 20060901

REACTIONS (4)
  - ANAPHYLACTIC SHOCK [None]
  - DYSPNOEA [None]
  - ERYTHEMA [None]
  - SHOCK [None]
